FAERS Safety Report 10059783 (Version 2)
Quarter: 2014Q2

REPORT INFORMATION
  Report Type: Spontaneous
  Country: JP (occurrence: JP)
  Receive Date: 20140404
  Receipt Date: 20140409
  Transmission Date: 20141212
  Serious: Yes (Death, Hospitalization, Other)
  Sender: FDA-Public Use
  Company Number: JP-UCBSA-116918

PATIENT
  Age: 74 Year
  Sex: Female

DRUGS (2)
  1. E KEPPRA [Suspect]
     Route: 048
  2. DEPAKENE-R [Suspect]
     Route: 048

REACTIONS (2)
  - Pneumonia [Fatal]
  - Pancytopenia [Unknown]
